FAERS Safety Report 6624321-7 (Version None)
Quarter: 2010Q1

REPORT INFORMATION
  Report Type: 
  Country: None (occurrence: None)
  Receive Date: 20100310
  Receipt Date: 20091008
  Transmission Date: 20100710
  Serious: No
  Sender: FDA-Public Use
  Company Number: US-BIOGENIDEC-2009BI032743

PATIENT
  Age: 44 Year
  Sex: Female

DRUGS (3)
  1. AVONEX [Suspect]
     Indication: MULTIPLE SCLEROSIS
     Route: 030
     Dates: start: 20020101, end: 20030101
  2. AVONEX [Suspect]
     Route: 030
     Dates: start: 20030101, end: 20041004
  3. AVONEX [Suspect]
     Route: 030
     Dates: start: 20071023

REACTIONS (4)
  - CATARACT [None]
  - INFLUENZA LIKE ILLNESS [None]
  - IRRITABILITY [None]
  - MENTAL DISORDER [None]
